FAERS Safety Report 8548641-4 (Version None)
Quarter: 2012Q3

REPORT INFORMATION
  Report Type: 
  Country: None (occurrence: None)
  Receive Date: 20120717
  Receipt Date: 20120703
  Transmission Date: 20120928
  Serious: Yes (Disabling, Other)
  Sender: FDA-Public Use
  Company Number: FK201201867

PATIENT
  Age: 62 Year
  Sex: Male

DRUGS (3)
  1. FLUOROURACIL [Concomitant]
  2. LEUCOVORIN CALCIUM [Concomitant]
  3. OXALIPLATIN [Suspect]
     Indication: BILE DUCT CANCER
     Dosage: 100 MG/M2

REACTIONS (4)
  - URINARY RETENTION [None]
  - DYSPHAGIA [None]
  - NEUTROPENIA [None]
  - GUILLAIN-BARRE SYNDROME [None]
